FAERS Safety Report 7666963-6 (Version None)
Quarter: 2011Q3

REPORT INFORMATION
  Report Type: 
  Country: None (occurrence: None)
  Receive Date: 20110806
  Receipt Date: 20110425
  Transmission Date: 20111222
  Serious: No
  Sender: FDA-Public Use
  Company Number: US-ABBOTT-11P-163-0721562-00

PATIENT
  Sex: Male

DRUGS (4)
  1. NIASPAN [Suspect]
     Dosage: ADMITTED TO SPLITTING IN HALF
     Dates: end: 20110301
  2. AMBIEN [Concomitant]
     Indication: PRODUCT USED FOR UNKNOWN INDICATION
  3. UNKNOWN MEDICATION [Concomitant]
     Indication: BLOOD PRESSURE
  4. NIASPAN [Suspect]
     Indication: BLOOD TRIGLYCERIDES INCREASED
     Dosage: BEDTIME
     Dates: start: 20110101

REACTIONS (4)
  - PARAESTHESIA [None]
  - FLUSHING [None]
  - NAUSEA [None]
  - WRONG TECHNIQUE IN DRUG USAGE PROCESS [None]
